FAERS Safety Report 7572428-2 (Version None)
Quarter: 2011Q2

REPORT INFORMATION
  Report Type: 
  Country: None (occurrence: None)
  Receive Date: 20110624
  Receipt Date: 20110620
  Transmission Date: 20111010
  Serious: Yes (Death, Life-Threatening, Hospitalization)
  Sender: FDA-Public Use
  Company Number: US-ASTRAZENECA-2011SE37166

PATIENT
  Age: 86 Year
  Sex: Male

DRUGS (3)
  1. NARCOTIC PAIN MEDICATION [Concomitant]
  2. LIGHT SLEEPING PILL [Concomitant]
     Indication: SLEEP DISORDER
     Route: 048
  3. SEROQUEL [Suspect]
     Indication: HALLUCINATION
     Dosage: ONCE
     Route: 048
     Dates: start: 20110617, end: 20110617

REACTIONS (2)
  - UNRESPONSIVE TO STIMULI [None]
  - DEATH [None]
